FAERS Safety Report 8337696-8 (Version None)
Quarter: 2012Q2

REPORT INFORMATION
  Report Type: 
  Country: None (occurrence: None)
  Receive Date: 20120504
  Receipt Date: 20120427
  Transmission Date: 20120825
  Serious: Yes (Hospitalization)
  Sender: FDA-Public Use
  Company Number: CN-JNJFOC-20120502086

PATIENT
  Age: 50 Year
  Sex: Male

DRUGS (1)
  1. TOPAMAX [Suspect]
     Indication: EPILEPSY
     Route: 048
     Dates: start: 20080301

REACTIONS (4)
  - DEPRESSION [None]
  - DYSLOGIA [None]
  - INJURY [None]
  - LOWER LIMB FRACTURE [None]
